FAERS Safety Report 25171477 (Version 1)
Quarter: 2025Q2

REPORT INFORMATION
  Report Type: Spontaneous
  Country: CA (occurrence: CA)
  Receive Date: 20250408
  Receipt Date: 20250408
  Transmission Date: 20250717
  Serious: Yes (Death, Other)
  Sender: BRISTOL MYERS SQUIBB
  Company Number: CA-BRISTOL-MYERS SQUIBB COMPANY-2025-051942

PATIENT
  Age: 43 Year
  Sex: Female
  Weight: 97 kg

DRUGS (232)
  1. ORENCIA [Suspect]
     Active Substance: ABATACEPT
     Indication: Rheumatoid arthritis
     Route: 042
  2. ACETAMINOPHEN [Concomitant]
     Active Substance: ACETAMINOPHEN
     Indication: Rheumatoid arthritis
  3. ACTEMRA [Concomitant]
     Active Substance: TOCILIZUMAB
     Indication: Rheumatoid arthritis
     Route: 058
  4. ACTEMRA [Concomitant]
     Active Substance: TOCILIZUMAB
     Route: 016
  5. ACTEMRA [Concomitant]
     Active Substance: TOCILIZUMAB
     Route: 016
  6. ACTEMRA [Concomitant]
     Active Substance: TOCILIZUMAB
     Route: 058
  7. ACTEMRA [Concomitant]
     Active Substance: TOCILIZUMAB
     Route: 058
  8. ACTEMRA [Concomitant]
     Active Substance: TOCILIZUMAB
     Route: 058
  9. ACTEMRA [Concomitant]
     Active Substance: TOCILIZUMAB
     Route: 058
  10. ADALIMUMAB [Concomitant]
     Active Substance: ADALIMUMAB
     Indication: Rheumatoid arthritis
     Route: 058
  11. ALENDRONIC ACID [Concomitant]
     Active Substance: ALENDRONIC ACID
     Indication: Rheumatoid arthritis
     Route: 016
  12. ALENDRONIC ACID [Concomitant]
     Active Substance: ALENDRONIC ACID
     Route: 048
  13. ALENDRONIC ACID [Concomitant]
     Active Substance: ALENDRONIC ACID
     Route: 016
  14. ALENDRONIC ACID [Concomitant]
     Active Substance: ALENDRONIC ACID
     Route: 016
  15. ALENDRONIC ACID [Concomitant]
     Active Substance: ALENDRONIC ACID
     Route: 048
  16. ALENDRONIC ACID [Concomitant]
     Active Substance: ALENDRONIC ACID
  17. ALENDRONIC ACID [Concomitant]
     Active Substance: ALENDRONIC ACID
  18. PREDNISONE [Concomitant]
     Active Substance: PREDNISONE
     Indication: Rheumatoid arthritis
  19. ARAVA [Concomitant]
     Active Substance: LEFLUNOMIDE
     Indication: Rheumatoid arthritis
  20. ASACOL [Concomitant]
     Active Substance: MESALAMINE
     Indication: Crohn^s disease
  21. ATIVAN [Concomitant]
     Active Substance: LORAZEPAM
     Indication: Product used for unknown indication
  22. AZATHIOPRINE [Concomitant]
     Active Substance: AZATHIOPRINE
     Indication: Rheumatoid arthritis
  23. BUPIVACAINE HYDROCHLORIDE [Concomitant]
     Active Substance: BUPIVACAINE HYDROCHLORIDE
     Indication: Rheumatoid arthritis
  24. CAFFEINE [Concomitant]
     Active Substance: CAFFEINE
     Indication: Product used for unknown indication
  25. CALCIUM CARBONATE [Concomitant]
     Active Substance: CALCIUM CARBONATE
     Indication: Rheumatoid arthritis
  26. CALCIUM CARBONATE [Concomitant]
     Active Substance: CALCIUM CARBONATE
     Route: 016
  27. CALCIUM CARBONATE [Concomitant]
     Active Substance: CALCIUM CARBONATE
     Route: 016
  28. CALCIUM CITRATE [Concomitant]
     Active Substance: CALCIUM CITRATE
     Indication: Product used for unknown indication
  29. CALCIUM GLUBIONATE [Concomitant]
     Active Substance: CALCIUM GLUBIONATE
     Indication: Product used for unknown indication
  30. CALCIUM GLUBIONATE [Concomitant]
     Active Substance: CALCIUM GLUBIONATE
  31. CELEBREX [Concomitant]
     Active Substance: CELECOXIB
     Indication: Rheumatoid arthritis
  32. CELEBREX [Concomitant]
     Active Substance: CELECOXIB
  33. CELECOXIB [Concomitant]
     Active Substance: CELECOXIB
     Indication: Rheumatoid arthritis
  34. CHLORAPREP [Concomitant]
     Active Substance: CHLORHEXIDINE GLUCONATE\ISOPROPYL ALCOHOL
     Indication: Rheumatoid arthritis
     Route: 061
  35. CHLORHEXIDINE GLUCONATE [Concomitant]
     Active Substance: CHLORHEXIDINE GLUCONATE
     Indication: Product used for unknown indication
     Route: 061
  36. CHLORHEXIDINE GLUCONATE [Concomitant]
     Active Substance: CHLORHEXIDINE GLUCONATE
  37. CHLORHEXIDINE GLUCONATE [Concomitant]
     Active Substance: CHLORHEXIDINE GLUCONATE
     Route: 002
  38. CHLORHEXIDINE GLUCONATE [Concomitant]
     Active Substance: CHLORHEXIDINE GLUCONATE
  39. CIMZIA [Concomitant]
     Active Substance: CERTOLIZUMAB PEGOL
     Indication: Rheumatoid arthritis
     Route: 058
  40. CIMZIA [Concomitant]
     Active Substance: CERTOLIZUMAB PEGOL
     Indication: Psoriasis
  41. CIMZIA [Concomitant]
     Active Substance: CERTOLIZUMAB PEGOL
     Route: 058
  42. CIMZIA [Concomitant]
     Active Substance: CERTOLIZUMAB PEGOL
     Route: 058
  43. CIMZIA [Concomitant]
     Active Substance: CERTOLIZUMAB PEGOL
  44. CLONIDINE [Concomitant]
     Active Substance: CLONIDINE
     Indication: Rheumatoid arthritis
  45. CODEINE [Concomitant]
     Active Substance: CODEINE
     Indication: Product used for unknown indication
  46. CORTISONE ACETATE [Concomitant]
     Active Substance: CORTISONE ACETATE
     Indication: Rheumatoid arthritis
  47. CORTISONE ACETATE [Concomitant]
     Active Substance: CORTISONE ACETATE
  48. COSENTYX [Concomitant]
     Active Substance: SECUKINUMAB
     Indication: Psoriatic arthropathy
  49. COSENTYX [Concomitant]
     Active Substance: SECUKINUMAB
  50. COSENTYX [Concomitant]
     Active Substance: SECUKINUMAB
  51. DESOGESTREL AND ETHINYL ESTRADIOL [Concomitant]
     Active Substance: DESOGESTREL\ETHINYL ESTRADIOL
     Indication: Product used for unknown indication
  52. DESOXIMETASONE [Concomitant]
     Active Substance: DESOXIMETASONE
     Indication: Rheumatoid arthritis
  53. DESOXIMETASONE [Concomitant]
     Active Substance: DESOXIMETASONE
     Route: 048
  54. DESOXIMETASONE [Concomitant]
     Active Substance: DESOXIMETASONE
     Route: 048
  55. DICLOFENAC [Concomitant]
     Active Substance: DICLOFENAC
     Indication: Product used for unknown indication
  56. DICLOFENAC [Concomitant]
     Active Substance: DICLOFENAC
  57. DICLOFENAC [Concomitant]
     Active Substance: DICLOFENAC
  58. DICLOFENAC POTASSIUM [Concomitant]
     Active Substance: DICLOFENAC POTASSIUM
     Indication: Product used for unknown indication
  59. DICLOFENAC POTASSIUM [Concomitant]
     Active Substance: DICLOFENAC POTASSIUM
  60. DICLOFENAC SODIUM [Concomitant]
     Active Substance: DICLOFENAC SODIUM
     Indication: Product used for unknown indication
  61. DICLOFENAC SODIUM [Concomitant]
     Active Substance: DICLOFENAC SODIUM
  62. DICLOFENAC SODIUM [Concomitant]
     Active Substance: DICLOFENAC SODIUM
  63. DICLOFENAC SODIUM [Concomitant]
     Active Substance: DICLOFENAC SODIUM
  64. DICLOFENAC SODIUM [Concomitant]
     Active Substance: DICLOFENAC SODIUM
  65. DICLOFENAC SODIUM [Concomitant]
     Active Substance: DICLOFENAC SODIUM
  66. DIPHENHYDRAMINE HYDROCHLORIDE [Concomitant]
     Active Substance: DIPHENHYDRAMINE HYDROCHLORIDE
     Indication: Rheumatoid arthritis
  67. DIPHENHYDRAMINE HYDROCHLORIDE [Concomitant]
     Active Substance: DIPHENHYDRAMINE HYDROCHLORIDE
  68. DOCOSAHEXAENOIC ACID;EICOSAPENTAENOIC ACID;IODINE;OMEGA-3 TRIGLYCERIDE [Concomitant]
     Indication: Rheumatoid arthritis
  69. DOXYCYCLINE HYCLATE [Concomitant]
     Active Substance: DOXYCYCLINE HYCLATE
     Indication: Product used for unknown indication
  70. ICOSAPENT [Concomitant]
     Active Substance: ICOSAPENT
     Indication: Product used for unknown indication
  71. SULFISOMIDINE [Concomitant]
     Active Substance: SULFISOMIDINE
     Indication: Rheumatoid arthritis
  72. SULFISOMIDINE [Concomitant]
     Active Substance: SULFISOMIDINE
  73. ENBREL [Concomitant]
     Active Substance: ETANERCEPT
     Indication: Rheumatoid arthritis
     Route: 058
  74. ENBREL [Concomitant]
     Active Substance: ETANERCEPT
     Indication: Psoriatic arthropathy
     Route: 058
  75. ENBREL [Concomitant]
     Active Substance: ETANERCEPT
     Route: 058
  76. ENBREL [Concomitant]
     Active Substance: ETANERCEPT
     Route: 058
  77. ERELZI [Concomitant]
     Active Substance: ETANERCEPT-SZZS
     Indication: Rheumatoid arthritis
  78. ERELZI [Concomitant]
     Active Substance: ETANERCEPT-SZZS
     Route: 058
  79. ERELZI [Concomitant]
     Active Substance: ETANERCEPT-SZZS
  80. FLUMETHASONE PIVALATE [Concomitant]
     Active Substance: FLUMETHASONE PIVALATE
     Indication: Product used for unknown indication
  81. FOLIC ACID [Concomitant]
     Active Substance: FOLIC ACID
     Indication: Rheumatoid arthritis
  82. FOLIC ACID [Concomitant]
     Active Substance: FOLIC ACID
  83. FOLIC ACID [Concomitant]
     Active Substance: FOLIC ACID
  84. FOLIC ACID [Concomitant]
     Active Substance: FOLIC ACID
  85. FOLIC ACID [Concomitant]
     Active Substance: FOLIC ACID
  86. FOLIC ACID [Concomitant]
     Active Substance: FOLIC ACID
  87. FOLIC ACID [Concomitant]
     Active Substance: FOLIC ACID
  88. FOLIC ACID [Concomitant]
     Active Substance: FOLIC ACID
  89. FOLIC ACID [Concomitant]
     Active Substance: FOLIC ACID
  90. FOSAMAX [Concomitant]
     Active Substance: ALENDRONATE SODIUM
     Indication: Rheumatoid arthritis
  91. FRAMYCETIN SULFATE [Concomitant]
     Active Substance: FRAMYCETIN SULFATE
     Indication: Rheumatoid arthritis
  92. GRAMICIDIN [Concomitant]
     Active Substance: GRAMICIDIN
     Indication: Rheumatoid arthritis
  93. HUMIRA [Concomitant]
     Active Substance: ADALIMUMAB
     Indication: Rheumatoid arthritis
     Route: 058
  94. HUMIRA [Concomitant]
     Active Substance: ADALIMUMAB
     Route: 058
  95. HUMIRA [Concomitant]
     Active Substance: ADALIMUMAB
     Route: 058
  96. HUMIRA [Concomitant]
     Active Substance: ADALIMUMAB
     Route: 058
  97. HYALURONIDASE [Concomitant]
     Active Substance: HYALURONIDASE
     Indication: Rheumatoid arthritis
  98. HYDROCORTISONE [Concomitant]
     Active Substance: HYDROCORTISONE
     Indication: Rheumatoid arthritis
     Route: 048
  99. HYDROCORTISONE [Concomitant]
     Active Substance: HYDROCORTISONE
  100. HYDROCORTISONE [Concomitant]
     Active Substance: HYDROCORTISONE
  101. HYDROXYCHLOROQUINE [Concomitant]
     Active Substance: HYDROXYCHLOROQUINE
     Indication: Systemic lupus erythematosus
  102. HYDROXYCHLOROQUINE [Concomitant]
     Active Substance: HYDROXYCHLOROQUINE
     Indication: Rheumatoid arthritis
  103. HYDROXYCHLOROQUINE [Concomitant]
     Active Substance: HYDROXYCHLOROQUINE
  104. HYDROXYCHLOROQUINE [Concomitant]
     Active Substance: HYDROXYCHLOROQUINE
  105. HYDROXYCHLOROQUINE SULFATE [Concomitant]
     Active Substance: HYDROXYCHLOROQUINE SULFATE
     Indication: Rheumatoid arthritis
  106. HYDROXYCHLOROQUINE SULFATE [Concomitant]
     Active Substance: HYDROXYCHLOROQUINE SULFATE
  107. HYDROXYCHLOROQUINE SULFATE [Concomitant]
     Active Substance: HYDROXYCHLOROQUINE SULFATE
  108. HYDROXYCHLOROQUINE SULFATE [Concomitant]
     Active Substance: HYDROXYCHLOROQUINE SULFATE
  109. LEFLUNOMIDE [Concomitant]
     Active Substance: LEFLUNOMIDE
     Indication: Rheumatoid arthritis
     Route: 048
  110. LEFLUNOMIDE [Concomitant]
     Active Substance: LEFLUNOMIDE
  111. LEFLUNOMIDE [Concomitant]
     Active Substance: LEFLUNOMIDE
     Route: 048
  112. LEFLUNOMIDE [Concomitant]
     Active Substance: LEFLUNOMIDE
     Route: 048
  113. LORAZEPAM [Concomitant]
     Active Substance: LORAZEPAM
     Indication: Product used for unknown indication
  114. LYRICA [Concomitant]
     Active Substance: PREGABALIN
     Indication: Fibromyalgia
  115. METHOTREXATE [Concomitant]
     Active Substance: METHOTREXATE
     Indication: Rheumatoid arthritis
     Route: 048
  116. METHOTREXATE [Concomitant]
     Active Substance: METHOTREXATE
     Route: 048
  117. METHOTREXATE [Concomitant]
     Active Substance: METHOTREXATE
     Route: 048
  118. METHOTREXATE [Concomitant]
     Active Substance: METHOTREXATE
     Route: 048
  119. METHOTREXATE [Concomitant]
     Active Substance: METHOTREXATE
     Route: 016
  120. METHOTREXATE [Concomitant]
     Active Substance: METHOTREXATE
     Route: 048
  121. METHOTREXATE [Concomitant]
     Active Substance: METHOTREXATE
     Route: 058
  122. METHOTREXATE [Concomitant]
     Active Substance: METHOTREXATE
     Route: 048
  123. METHOTREXATE [Concomitant]
     Active Substance: METHOTREXATE
  124. METHOTREXATE [Concomitant]
     Active Substance: METHOTREXATE
  125. METHOTREXATE [Concomitant]
     Active Substance: METHOTREXATE
     Route: 048
  126. METHOTREXATE [Concomitant]
     Active Substance: METHOTREXATE
     Route: 048
  127. METHOTREXATE [Concomitant]
     Active Substance: METHOTREXATE
     Route: 048
  128. METHYLPREDNISOLONE SODIUM SUCCINATE [Concomitant]
     Active Substance: METHYLPREDNISOLONE SODIUM SUCCINATE
     Indication: Product used for unknown indication
     Route: 048
  129. MINOCYCLINE HYDROCHLORIDE [Concomitant]
     Active Substance: MINOCYCLINE HYDROCHLORIDE
     Indication: Rheumatoid arthritis
  130. MORPHINE SULFATE [Concomitant]
     Active Substance: MORPHINE SULFATE
     Indication: Rheumatoid arthritis
  131. MYCOPHENOLATE MOFETIL [Concomitant]
     Active Substance: MYCOPHENOLATE MOFETIL
     Indication: Product used for unknown indication
  132. NAPROXEN SODIUM [Concomitant]
     Active Substance: NAPROXEN SODIUM
     Indication: Rheumatoid arthritis
  133. NAPROXEN SODIUM [Concomitant]
     Active Substance: NAPROXEN SODIUM
     Indication: Headache
  134. NAPROXEN SODIUM [Concomitant]
     Active Substance: NAPROXEN SODIUM
  135. NAPROXEN SODIUM [Concomitant]
     Active Substance: NAPROXEN SODIUM
  136. NEOMYCIN [Concomitant]
     Active Substance: NEOMYCIN
     Indication: Rheumatoid arthritis
     Route: 048
  137. NEOMYCIN [Concomitant]
     Active Substance: NEOMYCIN
  138. NITROFURAZONE [Concomitant]
     Active Substance: NITROFURAZONE
     Indication: Rheumatoid arthritis
  139. NITROFURAZONE [Concomitant]
     Active Substance: NITROFURAZONE
     Route: 048
  140. OTEZLA [Concomitant]
     Active Substance: APREMILAST
     Indication: Product used for unknown indication
  141. OTEZLA [Concomitant]
     Active Substance: APREMILAST
  142. OTEZLA [Concomitant]
     Active Substance: APREMILAST
  143. OTEZLA [Concomitant]
     Active Substance: APREMILAST
  144. OTEZLA [Concomitant]
     Active Substance: APREMILAST
  145. OTEZLA [Concomitant]
     Active Substance: APREMILAST
  146. OXYCODONE [Concomitant]
     Active Substance: OXYCODONE
     Indication: Product used for unknown indication
  147. OXYCODONE HYDROCHLORIDE [Concomitant]
     Active Substance: OXYCODONE HYDROCHLORIDE
     Indication: Product used for unknown indication
  148. OXYCODONE TEREPHTHALATE [Concomitant]
     Active Substance: OXYCODONE TEREPHTHALATE
     Indication: Product used for unknown indication
  149. PANTOPRAZOLE SODIUM [Concomitant]
     Active Substance: PANTOPRAZOLE SODIUM
     Indication: Dyspepsia
     Route: 016
  150. PANTOPRAZOLE SODIUM [Concomitant]
     Active Substance: PANTOPRAZOLE SODIUM
  151. PANTOPRAZOLE SODIUM [Concomitant]
     Active Substance: PANTOPRAZOLE SODIUM
  152. PANTOPRAZOLE SODIUM [Concomitant]
     Active Substance: PANTOPRAZOLE SODIUM
     Route: 005
  153. PANTOPRAZOLE SODIUM [Concomitant]
     Active Substance: PANTOPRAZOLE SODIUM
     Route: 016
  154. PANTOPRAZOLE SODIUM [Concomitant]
     Active Substance: PANTOPRAZOLE SODIUM
     Route: 016
  155. PARA-AMINOSALICYLIC ACID [Concomitant]
     Active Substance: AMINOSALICYLIC ACID
     Indication: Product used for unknown indication
  156. PHTHALYLSULFATHIAZOLE [Concomitant]
     Active Substance: PHTHALYLSULFATHIAZOLE
  157. PHTHALYLSULFATHIAZOLE [Concomitant]
     Active Substance: PHTHALYLSULFATHIAZOLE
  158. PREDNISONE [Concomitant]
     Active Substance: PREDNISONE
     Indication: Rheumatoid arthritis
     Route: 048
  159. PREDNISONE [Concomitant]
     Active Substance: PREDNISONE
     Indication: Condition aggravated
     Route: 048
  160. PREDNISONE [Concomitant]
     Active Substance: PREDNISONE
     Route: 048
  161. PREDNISONE [Concomitant]
     Active Substance: PREDNISONE
     Route: 048
  162. PREDNISONE [Concomitant]
     Active Substance: PREDNISONE
  163. PREDNISONE [Concomitant]
     Active Substance: PREDNISONE
     Route: 048
  164. PREDNISONE [Concomitant]
     Active Substance: PREDNISONE
     Route: 048
  165. PSEUDOEPHEDRINE HYDROCHLORIDE [Concomitant]
     Active Substance: PSEUDOEPHEDRINE HYDROCHLORIDE
     Indication: Product used for unknown indication
  166. QUETIAPINE FUMARATE [Concomitant]
     Active Substance: QUETIAPINE FUMARATE
     Indication: Product used for unknown indication
  167. QUETIAPINE FUMARATE [Concomitant]
     Active Substance: QUETIAPINE FUMARATE
  168. RAMIPRIL [Concomitant]
     Active Substance: RAMIPRIL
     Indication: Product used for unknown indication
  169. RAMIPRIL [Concomitant]
     Active Substance: RAMIPRIL
     Route: 016
  170. CETIRIZINE HYDROCHLORIDE [Concomitant]
     Active Substance: CETIRIZINE HYDROCHLORIDE
     Indication: Rheumatoid arthritis
  171. CETIRIZINE HYDROCHLORIDE [Concomitant]
     Active Substance: CETIRIZINE HYDROCHLORIDE
  172. CETIRIZINE HYDROCHLORIDE [Concomitant]
     Active Substance: CETIRIZINE HYDROCHLORIDE
  173. CETIRIZINE HYDROCHLORIDE [Concomitant]
     Active Substance: CETIRIZINE HYDROCHLORIDE
  174. CETIRIZINE HYDROCHLORIDE [Concomitant]
     Active Substance: CETIRIZINE HYDROCHLORIDE
  175. CETIRIZINE HYDROCHLORIDE [Concomitant]
     Active Substance: CETIRIZINE HYDROCHLORIDE
  176. CETIRIZINE HYDROCHLORIDE [Concomitant]
     Active Substance: CETIRIZINE HYDROCHLORIDE
  177. CETIRIZINE HYDROCHLORIDE [Concomitant]
     Active Substance: CETIRIZINE HYDROCHLORIDE
  178. CETIRIZINE HYDROCHLORIDE [Concomitant]
     Active Substance: CETIRIZINE HYDROCHLORIDE
  179. CETIRIZINE HYDROCHLORIDE [Concomitant]
     Active Substance: CETIRIZINE HYDROCHLORIDE
  180. CETIRIZINE HYDROCHLORIDE [Concomitant]
     Active Substance: CETIRIZINE HYDROCHLORIDE
  181. CETIRIZINE HYDROCHLORIDE [Concomitant]
     Active Substance: CETIRIZINE HYDROCHLORIDE
  182. CETIRIZINE HYDROCHLORIDE [Concomitant]
     Active Substance: CETIRIZINE HYDROCHLORIDE
  183. CETIRIZINE HYDROCHLORIDE [Concomitant]
     Active Substance: CETIRIZINE HYDROCHLORIDE
  184. CETIRIZINE HYDROCHLORIDE\PSEUDOEPHEDRINE HYDROCHLORIDE [Concomitant]
     Active Substance: CETIRIZINE HYDROCHLORIDE\PSEUDOEPHEDRINE HYDROCHLORIDE
     Indication: Rheumatoid arthritis
  185. CETIRIZINE HYDROCHLORIDE\PSEUDOEPHEDRINE HYDROCHLORIDE [Concomitant]
     Active Substance: CETIRIZINE HYDROCHLORIDE\PSEUDOEPHEDRINE HYDROCHLORIDE
  186. CETIRIZINE HYDROCHLORIDE\PSEUDOEPHEDRINE HYDROCHLORIDE [Concomitant]
     Active Substance: CETIRIZINE HYDROCHLORIDE\PSEUDOEPHEDRINE HYDROCHLORIDE
  187. CETIRIZINE HYDROCHLORIDE\PSEUDOEPHEDRINE HYDROCHLORIDE [Concomitant]
     Active Substance: CETIRIZINE HYDROCHLORIDE\PSEUDOEPHEDRINE HYDROCHLORIDE
  188. REMICADE [Concomitant]
     Active Substance: INFLIXIMAB
     Indication: Rheumatoid arthritis
     Route: 042
  189. REMICADE [Concomitant]
     Active Substance: INFLIXIMAB
     Route: 042
  190. REMICADE [Concomitant]
     Active Substance: INFLIXIMAB
  191. REMICADE [Concomitant]
     Active Substance: INFLIXIMAB
     Route: 042
  192. REMICADE [Concomitant]
     Active Substance: INFLIXIMAB
     Route: 042
  193. REMICADE [Concomitant]
     Active Substance: INFLIXIMAB
  194. REMICADE [Concomitant]
     Active Substance: INFLIXIMAB
     Route: 042
  195. RITUXIMAB [Concomitant]
     Active Substance: RITUXIMAB
     Indication: Product used for unknown indication
  196. SALICYLIC ACID [Concomitant]
     Active Substance: SALICYLIC ACID
     Indication: Rheumatoid arthritis
     Route: 058
  197. SALICYLIC ACID [Concomitant]
     Active Substance: SALICYLIC ACID
  198. SALICYLIC ACID [Concomitant]
     Active Substance: SALICYLIC ACID
  199. SALICYLIC ACID [Concomitant]
     Active Substance: SALICYLIC ACID
  200. SIMPONI [Concomitant]
     Active Substance: GOLIMUMAB
     Indication: Rheumatoid arthritis
     Route: 058
  201. STELARA [Concomitant]
     Active Substance: USTEKINUMAB
     Indication: Rheumatoid arthritis
     Route: 058
  202. STELARA [Concomitant]
     Active Substance: USTEKINUMAB
     Route: 042
  203. STELARA [Concomitant]
     Active Substance: USTEKINUMAB
  204. STELARA [Concomitant]
     Active Substance: USTEKINUMAB
     Route: 042
  205. STELARA [Concomitant]
     Active Substance: USTEKINUMAB
     Route: 058
  206. STELARA [Concomitant]
     Active Substance: USTEKINUMAB
  207. SULFASALAZINE [Concomitant]
     Active Substance: SULFASALAZINE
     Indication: Rheumatoid arthritis
     Route: 058
  208. SULFASALAZINE [Concomitant]
     Active Substance: SULFASALAZINE
     Route: 058
  209. SULFASALAZINE [Concomitant]
     Active Substance: SULFASALAZINE
     Route: 058
  210. SULFASALAZINE [Concomitant]
     Active Substance: SULFASALAZINE
     Route: 058
  211. SULFASALAZINE [Concomitant]
     Active Substance: SULFASALAZINE
     Route: 058
  212. SULFASALAZINE [Concomitant]
     Active Substance: SULFASALAZINE
     Route: 058
  213. SULFASALAZINE [Concomitant]
     Active Substance: SULFASALAZINE
     Route: 048
  214. TEMAZEPAM [Concomitant]
     Active Substance: TEMAZEPAM
     Indication: Product used for unknown indication
  215. THYMOL [Concomitant]
     Active Substance: THYMOL
     Indication: Rheumatoid arthritis
     Route: 048
  216. THYMOL [Concomitant]
     Active Substance: THYMOL
     Route: 048
  217. TOFACITINIB [Concomitant]
     Active Substance: TOFACITINIB
     Indication: Product used for unknown indication
  218. TOFACITINIB [Concomitant]
     Active Substance: TOFACITINIB
  219. TRAMADOL HYDROCHLORIDE [Concomitant]
     Active Substance: TRAMADOL HYDROCHLORIDE
     Indication: Product used for unknown indication
  220. TRICLOSAN [Concomitant]
     Active Substance: TRICLOSAN
     Indication: Product used for unknown indication
  221. TUMS [Concomitant]
     Active Substance: CALCIUM CARBONATE
     Indication: Product used for unknown indication
  222. TUMS [Concomitant]
     Active Substance: CALCIUM CARBONATE
  223. TUMS [Concomitant]
     Active Substance: CALCIUM CARBONATE
  224. RETINOL [Concomitant]
     Active Substance: RETINOL
     Indication: Rheumatoid arthritis
     Route: 048
  225. RETINOL [Concomitant]
     Active Substance: RETINOL
  226. VITAMIN B1 [Concomitant]
     Active Substance: THIAMINE HYDROCHLORIDE
     Indication: Product used for unknown indication
  227. VITAMIN B12 [Concomitant]
     Active Substance: CYANOCOBALAMIN
     Indication: Rheumatoid arthritis
  228. PREDNISONE [Concomitant]
     Active Substance: PREDNISONE
     Indication: Rheumatoid arthritis
  229. XELJANZ [Concomitant]
     Active Substance: TOFACITINIB CITRATE
     Indication: Rheumatoid arthritis
  230. XELJANZ [Concomitant]
     Active Substance: TOFACITINIB CITRATE
  231. XELJANZ [Concomitant]
     Active Substance: TOFACITINIB CITRATE
  232. ZESTRIL [Concomitant]
     Active Substance: LISINOPRIL
     Indication: Product used for unknown indication

REACTIONS (1)
  - Death [Fatal]
